FAERS Safety Report 9754611 (Version 2)
Quarter: 2013Q4

REPORT INFORMATION
  Report Type: Spontaneous
  Country: US (occurrence: US)
  Receive Date: 20131213
  Receipt Date: 20131227
  Transmission Date: 20140711
  Serious: Yes (Other)
  Sender: FDA-Public Use
  Company Number: US-PFIZER INC-2013356266

PATIENT
  Sex: Female

DRUGS (1)
  1. PREMARIN [Suspect]
     Dosage: 0.5 G, 2X/WEEK
     Route: 067
     Dates: start: 2010, end: 2013

REACTIONS (2)
  - Accident [Unknown]
  - Arthropathy [Recovered/Resolved]
